FAERS Safety Report 17562691 (Version 1)
Quarter: 2020Q1

REPORT INFORMATION
  Report Type: Spontaneous
  Country: US (occurrence: US)
  Receive Date: 20200319
  Receipt Date: 20200319
  Transmission Date: 20200409
  Serious: No
  Sender: FDA-Public Use
  Company Number: US-TEVA-2020-US-1205366

PATIENT
  Sex: Male

DRUGS (1)
  1. PROAIR HFA [Suspect]
     Active Substance: ALBUTEROL SULFATE
     Route: 065

REACTIONS (4)
  - Expired product administered [Unknown]
  - Oropharyngeal pain [Recovered/Resolved]
  - Therapy cessation [Unknown]
  - Tremor [Unknown]

NARRATIVE: CASE EVENT DATE: 20200309
